FAERS Safety Report 7172230-X (Version None)
Quarter: 2010Q4

REPORT INFORMATION
  Report Type: 
  Country: None (occurrence: None)
  Receive Date: 20101217
  Receipt Date: 20100205
  Transmission Date: 20110411
  Serious: No
  Sender: FDA-Public Use
  Company Number: US-AMGEN-KDL391055

PATIENT

DRUGS (10)
  1. ENBREL [Suspect]
     Indication: PRODUCT USED FOR UNKNOWN INDICATION
     Dosage: 50 MG, QWK
     Route: 058
  2. METHOTREXATE [Concomitant]
     Dosage: 2.5 MG, UNK
  3. CETIRIZINE HYDROCHLORIDE [Concomitant]
     Dosage: 10 MG, UNK
  4. FOLIC ACID [Concomitant]
     Dosage: 1 MG, UNK
  5. ROSUVASTATIN CALCIUM [Concomitant]
     Dosage: 10 MG, UNK
  6. ACETAMINOPHEN [Concomitant]
     Dosage: 500 MG, UNK
  7. ASPIRIN [Concomitant]
     Dosage: 81 MG, UNK
  8. OLMESARTAN MEDOXOMIL [Concomitant]
     Dosage: 20 MG, UNK
  9. COENZYME Q10 [Concomitant]
     Dosage: UNK UNK, UNK
  10. MELOXICAM [Concomitant]
     Dosage: 15 MG, UNK

REACTIONS (3)
  - DIZZINESS [None]
  - HYPOAESTHESIA [None]
  - PARAESTHESIA [None]
